FAERS Safety Report 21403706 (Version 1)
Quarter: 2022Q4

REPORT INFORMATION
  Report Type: Spontaneous
  Country: CN (occurrence: CN)
  Receive Date: 20221003
  Receipt Date: 20221003
  Transmission Date: 20230113
  Serious: Yes (Life-Threatening, Hospitalization, Other)
  Sender: FDA-Public Use
  Company Number: CN-PFIZER INC-202201196149

PATIENT
  Age: 40 Year
  Sex: Male

DRUGS (5)
  1. LINEZOLID [Suspect]
     Active Substance: LINEZOLID
     Indication: Pneumonia
     Dosage: 600 MG, 2X/DAY
     Route: 041
     Dates: start: 20220905, end: 20220914
  2. LINEZOLID [Suspect]
     Active Substance: LINEZOLID
     Indication: Pneumonia
     Dosage: 600 MG, 2X/DAY
     Route: 048
     Dates: start: 20220915, end: 20220918
  3. CILASTATIN SODIUM\IMIPENEM [Concomitant]
     Active Substance: CILASTATIN SODIUM\IMIPENEM
     Indication: Pneumonia
     Dosage: 1 G, 4X/DAY
     Route: 041
     Dates: start: 20220905, end: 20220914
  4. CILASTATIN SODIUM\IMIPENEM [Concomitant]
     Active Substance: CILASTATIN SODIUM\IMIPENEM
     Dosage: 1 G, 3X/DAY
     Dates: start: 20220915, end: 20220918
  5. CASPOFUNGIN ACETATE [Concomitant]
     Active Substance: CASPOFUNGIN ACETATE
     Indication: Pneumonia
     Dosage: 50 MG, 1X/DAY
     Route: 041
     Dates: start: 20220905, end: 20220907

REACTIONS (3)
  - Myelosuppression [Recovering/Resolving]
  - White blood cell count decreased [Recovering/Resolving]
  - Neutropenia [Recovering/Resolving]

NARRATIVE: CASE EVENT DATE: 20220923
